FAERS Safety Report 9826638 (Version 1)
Quarter: 2013Q4

REPORT INFORMATION
  Report Type: Spontaneous
  Country: US (occurrence: None)
  Receive Date: 20131223
  Receipt Date: 20131223
  Transmission Date: 20140711
  Serious: No
  Sender: FDA-Public Use
  Company Number: 219377LEO

PATIENT
  Age: 59 Year
  Sex: Female

DRUGS (5)
  1. PICATO GEL [Suspect]
     Indication: PRECANCEROUS CELLS PRESENT
     Dosage: 1 IN 1 D
     Route: 061
     Dates: start: 20121015
  2. ADVAIR [Concomitant]
  3. VERAMIST [Concomitant]
  4. AZELASTINE HYDROCHLORIDE [Concomitant]
  5. CARBATROL [Concomitant]

REACTIONS (7)
  - Erythema [None]
  - Blister [None]
  - Swelling [None]
  - Skin wound [None]
  - Rash pustular [None]
  - Drug administration error [None]
  - Skin exfoliation [None]
